FAERS Safety Report 4378095-3 (Version None)
Quarter: 2004Q2

REPORT INFORMATION
  Report Type: 
  Country: None (occurrence: None)
  Receive Date: 20040614
  Receipt Date: 20040609
  Transmission Date: 20050107
  Serious: Yes (Hospitalization)
  Sender: FDA-Public Use
  Company Number: 2004UW11947

PATIENT
  Age: 82 Year
  Sex: Male
  Weight: 72.5755 kg

DRUGS (8)
  1. CRESTOR [Suspect]
     Indication: BLOOD CHOLESTEROL INCREASED
     Dosage: 10 MG PO
     Route: 048
     Dates: start: 20040201, end: 20040608
  2. ULTRAM [Concomitant]
  3. PREVACID [Concomitant]
  4. GLUCOTROL [Concomitant]
  5. NEURONTIN [Concomitant]
  6. ASPIRIN [Concomitant]
  7. EXCEDRIN (MIGRAINE) [Concomitant]
  8. GLUCOSAMINE [Concomitant]

REACTIONS (3)
  - DIARRHOEA [None]
  - HAEMATEMESIS [None]
  - MALAISE [None]
